FAERS Safety Report 10375512 (Version 3)
Quarter: 2014Q3

REPORT INFORMATION
  Report Type: Spontaneous
  Country: CH (occurrence: None)
  Receive Date: 20140806
  Receipt Date: 20140923
  Transmission Date: 20150326
  Serious: Yes (Other)
  Sender: FDA-Public Use
  Company Number: 20140477

PATIENT
  Age: 35 Year
  Sex: Female

DRUGS (1)
  1. FERINJECT [Suspect]
     Active Substance: FERRIC CARBOXYMALTOSE
     Indication: IRON DEFICIENCY
     Dosage: 1000MG IN 250 NAC1 IN 30MIN INTRAVENOUS DRIP
     Route: 041
     Dates: start: 20140716, end: 20140716

REACTIONS (3)
  - Viral infection [None]
  - Bedridden [None]
  - Influenza like illness [None]

NARRATIVE: CASE EVENT DATE: 20140716
